FAERS Safety Report 7746387-3 (Version None)
Quarter: 2011Q3

REPORT INFORMATION
  Report Type: 
  Country: None (occurrence: None)
  Receive Date: 20110913
  Receipt Date: 20110913
  Transmission Date: 20111222
  Serious: Yes (Hospitalization, Disabling)
  Sender: FDA-Public Use
  Company Number: None

PATIENT
  Age: 28 Year
  Sex: Male
  Weight: 62.1 kg

DRUGS (15)
  1. OXYCODONE HCL [Concomitant]
     Route: 048
  2. CYCLOSPORINE [Concomitant]
     Route: 048
  3. CHLORHEXIDINE GLUCONATE [Concomitant]
     Route: 048
  4. MBX [Concomitant]
     Route: 048
  5. PREDNISONE [Concomitant]
     Route: 048
  6. VITAMIN B-12 [Concomitant]
     Route: 048
  7. HEPARIN [Concomitant]
     Route: 042
  8. MORPHINE [Concomitant]
     Route: 042
  9. DOCUSATE [Concomitant]
     Route: 048
  10. B-COMPLEX/VITAMIN B12/CHOL BITART/NIACIN [Concomitant]
     Route: 048
  11. FOLIC ACID [Concomitant]
     Route: 048
  12. SLIDING SCALE INSULIN [Concomitant]
     Route: 058
  13. ONDANSETRON [Concomitant]
     Route: 042
  14. EXJADE [Suspect]
     Indication: HAEMOCHROMATOSIS
     Dosage: 1,000 MG -2-500 MG TABLETS-
     Route: 048
  15. EXJADE [Concomitant]
     Route: 048

REACTIONS (10)
  - HAEMOLYSIS [None]
  - ABDOMINAL PAIN [None]
  - APLASTIC ANAEMIA [None]
  - LIVER FUNCTION TEST ABNORMAL [None]
  - DYSPHAGIA [None]
  - LIVER INJURY [None]
  - ALANINE AMINOTRANSFERASE INCREASED [None]
  - FATIGUE [None]
  - HAEMATURIA [None]
  - ASPARTATE AMINOTRANSFERASE INCREASED [None]
